FAERS Safety Report 21231095 (Version 3)
Quarter: 2024Q3

REPORT INFORMATION
  Report Type: Spontaneous
  Country: ES (occurrence: ES)
  Receive Date: 20220819
  Receipt Date: 20240920
  Transmission Date: 20241017
  Serious: Yes (Other)
  Sender: ASTELLAS
  Company Number: ES-PFIZER INC-202201038240

PATIENT
  Age: 64 Year
  Sex: Male

DRUGS (6)
  1. MICAFUNGIN [Suspect]
     Active Substance: MICAFUNGIN SODIUM
     Indication: Antifungal prophylaxis
     Route: 065
  2. CYCLOPHOSPHAMIDE [Suspect]
     Active Substance: CYCLOPHOSPHAMIDE
     Indication: Acute lymphocytic leukaemia
     Route: 065
  3. VANCOMYCIN HYDROCHLORIDE [Suspect]
     Active Substance: VANCOMYCIN HYDROCHLORIDE
     Indication: Evidence based treatment
     Route: 050
  4. CEFTOLOZANE SULFATE\TAZOBACTAM SODIUM [Suspect]
     Active Substance: CEFTOLOZANE SULFATE\TAZOBACTAM SODIUM
     Indication: Product used for unknown indication
     Route: 050
  5. CEFTOLOZANE SULFATE\TAZOBACTAM SODIUM [Suspect]
     Active Substance: CEFTOLOZANE SULFATE\TAZOBACTAM SODIUM
     Dosage: UNK UNK, UNKNOWN FREQ.
     Route: 042
  6. CYTARABINE [Suspect]
     Active Substance: CYTARABINE
     Indication: Acute lymphocytic leukaemia
     Route: 065

REACTIONS (7)
  - Aspergillus infection [Unknown]
  - Mucosal inflammation [Unknown]
  - Pseudomonas infection [Unknown]
  - Neutropenia [Unknown]
  - Pyrexia [Unknown]
  - Lung infiltration [Unknown]
  - Pulmonary mass [Unknown]
